FAERS Safety Report 5374602-2 (Version None)
Quarter: 2007Q2

REPORT INFORMATION
  Report Type: 
  Country: None (occurrence: None)
  Receive Date: 20070627
  Receipt Date: 20070627
  Transmission Date: 20071010
  Serious: Yes (Hospitalization)
  Sender: FDA-Public Use
  Company Number: None

PATIENT
  Age: 41 Year
  Sex: Female

DRUGS (12)
  1. ZOMETA [Suspect]
     Indication: OSTEOPOROSIS
     Dosage: 4MG Q12 WEEKS IV
     Route: 042
     Dates: start: 20061130
  2. ZOMETA [Suspect]
     Indication: OSTEOPOROSIS
     Dosage: 4MG Q12 WEEKS IV
     Route: 042
     Dates: start: 20070227
  3. ZOMETA [Suspect]
     Indication: OSTEOPOROSIS
     Dosage: 4MG Q12 WEEKS IV
     Route: 042
     Dates: start: 20070522
  4. PAXIL [Concomitant]
  5. PROTONIX [Concomitant]
  6. DEXAMETHASONE [Concomitant]
  7. DILANTIN [Concomitant]
  8. LIPITOR [Concomitant]
  9. AMBIEN [Concomitant]
  10. ZITHROMAX [Concomitant]
  11. CLEOCIN T GEL [Concomitant]
  12. CLOTRIMAZOLE [Concomitant]

REACTIONS (8)
  - APHASIA [None]
  - BLINDNESS UNILATERAL [None]
  - CONFUSIONAL STATE [None]
  - CONVULSION [None]
  - HEADACHE [None]
  - HERPES SIMPLEX [None]
  - MUSCULAR WEAKNESS [None]
  - VISION BLURRED [None]
